FAERS Safety Report 5097358-X (Version None)
Quarter: 2006Q3

REPORT INFORMATION
  Report Type: 
  Country: None (occurrence: None)
  Receive Date: 20060906
  Receipt Date: 20060729
  Transmission Date: 20061208
  Serious: Yes (Other)
  Sender: FDA-Public Use
  Company Number: US-ROCHE-457744

PATIENT
  Age: 33 Year
  Sex: Male

DRUGS (3)
  1. PEGASYS [Suspect]
     Dosage: ROUTE OF ADMINISTRATION REPORTED AS INJ. STRENGTH REPORTED AS 180 MCG/0.5 ML.
     Route: 058
     Dates: start: 20060606
  2. COPEGUS [Suspect]
     Route: 048
     Dates: start: 20060606
  3. PAXIL [Concomitant]
     Indication: DEPRESSION
     Dosage: DOSE INCREASED TO 40 MG DAILY IN JUN 2006.

REACTIONS (11)
  - AGGRESSION [None]
  - ANXIETY [None]
  - CONDITION AGGRAVATED [None]
  - CONVULSION [None]
  - DEPRESSION [None]
  - DRUG INEFFECTIVE [None]
  - FATIGUE [None]
  - MOOD SWINGS [None]
  - MYALGIA [None]
  - PAIN [None]
  - STRESS [None]
